FAERS Safety Report 6469389-6 (Version None)
Quarter: 2009Q4

REPORT INFORMATION
  Report Type: 
  Country: None (occurrence: None)
  Receive Date: 20091203
  Receipt Date: 20091123
  Transmission Date: 20100525
  Serious: Yes (Hospitalization, Other)
  Sender: FDA-Public Use
  Company Number: US-ELI_LILLY_AND_COMPANY-US200911006429

PATIENT
  Sex: Female

DRUGS (9)
  1. EVISTA [Suspect]
     Indication: OSTEOPENIA
     Dosage: 60 MG, DAILY (1/D)
     Route: 065
     Dates: start: 19980101
  2. ASACOL [Concomitant]
     Dosage: UNK, UNKNOWN
     Route: 065
  3. METFORMIN HCL [Concomitant]
     Dosage: UNK, UNKNOWN
     Route: 065
  4. ACCUPRIL [Concomitant]
     Dosage: UNK, UNKNOWN
     Route: 065
  5. NORVASC [Concomitant]
     Dosage: UNK, UNKNOWN
     Route: 065
  6. LORAZEPAM [Concomitant]
     Dosage: UNK, UNKNOWN
     Route: 065
  7. CALTRATE /00108001/ [Concomitant]
     Dosage: UNK, UNKNOWN
     Route: 065
  8. MULTI-VITAMIN [Concomitant]
     Dosage: UNK, UNKNOWN
     Route: 065
  9. AVENTYL HYDROCHLORIDE [Concomitant]
     Dosage: UNK, UNKNOWN
     Route: 065

REACTIONS (9)
  - BACTERIAL INFECTION [None]
  - BLOOD CALCIUM ABNORMAL [None]
  - BREAST CALCIFICATIONS [None]
  - IMPAIRED HEALING [None]
  - MACULAR DEGENERATION [None]
  - NEPHROLITHIASIS [None]
  - OVARIAN DISORDER [None]
  - TYPE 2 DIABETES MELLITUS [None]
  - UTERINE LEIOMYOMA [None]
